FAERS Safety Report 16907808 (Version 5)
Quarter: 2020Q1

REPORT INFORMATION
  Report Type: Spontaneous
  Country: FR (occurrence: FR)
  Receive Date: 20191011
  Receipt Date: 20200130
  Transmission Date: 20200409
  Serious: Yes (Death, Hospitalization, Other)
  Sender: FDA-Public Use
  Company Number: FR-AUROBINDO-AUR-APL-2019-065899

PATIENT
  Sex: Male
  Weight: .45 kg

DRUGS (10)
  1. SPECIAFOLDINE [Suspect]
     Active Substance: FOLIC ACID
     Indication: VITAMIN SUPPLEMENTATION
     Dosage: 1 DOSAGE FORM, ONCE A DAY (MATERNAL DOSE)
     Route: 064
     Dates: start: 20161121
  2. CORTANCYL [Suspect]
     Active Substance: PREDNISONE
     Indication: THROMBOTIC THROMBOCYTOPENIC PURPURA
     Dosage: 80 MILLIGRAM, ONCE A DAY (MATERNAL DOSE)
     Route: 064
     Dates: start: 20161118
  3. CORTANCYL [Suspect]
     Active Substance: PREDNISONE
     Dosage: 20 MILLIGRAM, ONCE A DAY  (MATERNAL DOSE)
     Route: 064
  4. ORACILLINE [Suspect]
     Active Substance: PENICILLIN V
     Indication: ANTIBIOTIC PROPHYLAXIS
     Dosage: 2 DOSAGE FORM, ONCE A DAY (MATERNAL DOSE)
     Route: 064
     Dates: start: 20161220
  5. KARDEGIC [Suspect]
     Active Substance: ASPIRIN DL-LYSINE
     Indication: PROPHYLAXIS
     Dosage: 1 DOSAGE FORM, ONCE A DAY (MATERNAL DOSE)
     Route: 064
     Dates: start: 20161126
  6. EPINEPHRINE BITARTRATE [Concomitant]
     Active Substance: EPINEPHRINE BITARTRATE
     Indication: PRODUCT USED FOR UNKNOWN INDICATION
     Dosage: UNK
     Route: 064
  7. CORTANCYL [Suspect]
     Active Substance: PREDNISONE
     Dosage: 80 MILLIGRAM, ONCE A DAY  (MATERNAL DOSE)
     Route: 064
     Dates: start: 201701
  8. MABTHERA [Suspect]
     Active Substance: RITUXIMAB
     Indication: THROMBOTIC THROMBOCYTOPENIC PURPURA
     Dosage: 2 DOSAGE FORM, TOTAL (MATERNAL DOSE)
     Route: 064
     Dates: start: 20161207
  9. ADRENALINE [Concomitant]
     Active Substance: EPINEPHRINE
     Indication: PRODUCT USED FOR UNKNOWN INDICATION
     Dosage: UNK
     Route: 065
  10. PANTOPRAZOLE [Suspect]
     Active Substance: PANTOPRAZOLE
     Indication: PROPHYLAXIS AGAINST GASTROINTESTINAL ULCER
     Dosage: 20 MILLIGRAM, ONCE A DAY (MATERNAL DOSE)
     Route: 064
     Dates: start: 20161121

REACTIONS (6)
  - Maternal exposure during pregnancy [Unknown]
  - Premature baby [Fatal]
  - Foetal exposure during pregnancy [Unknown]
  - Foetal growth restriction [Fatal]
  - Multiple organ dysfunction syndrome [Fatal]
  - Low birth weight baby [Unknown]

NARRATIVE: CASE EVENT DATE: 20161220
